FAERS Safety Report 8580035 (Version 2)
Quarter: 2013Q2

REPORT INFORMATION
  Report Type: Spontaneous
  Country: CA (occurrence: CA)
  Receive Date: 20120525
  Receipt Date: 20130429
  Transmission Date: 20140414
  Serious: Yes (Hospitalization)
  Sender: FDA-Public Use
  Company Number: CA-JNJFOC-20120508163

PATIENT
  Age: 21 Year
  Sex: Male
  Weight: 91 kg

DRUGS (9)
  1. REMICADE [Suspect]
     Indication: CROHN^S DISEASE
     Route: 042
  2. REMICADE [Suspect]
     Indication: CROHN^S DISEASE
     Route: 042
     Dates: start: 20120524
  3. REMICADE [Suspect]
     Indication: CROHN^S DISEASE
     Route: 042
     Dates: start: 20120507
  4. REMICADE [Suspect]
     Indication: CROHN^S DISEASE
     Route: 042
     Dates: start: 20091008
  5. BUSCOPAN [Concomitant]
     Indication: PAIN
     Route: 065
  6. TYLENOL NO.3 [Concomitant]
     Indication: PAIN
     Dosage: ONCE EVERY 4 HOURS
     Route: 048
  7. BENADRYL [Concomitant]
     Indication: PREMEDICATION
     Route: 042
  8. BENADRYL [Concomitant]
     Indication: PREMEDICATION
     Route: 048
  9. TYLENOL [Concomitant]
     Indication: PREMEDICATION
     Route: 048

REACTIONS (4)
  - Nephrolithiasis [Unknown]
  - Nausea [Recovered/Resolved]
  - Vomiting [Recovered/Resolved]
  - Infusion related reaction [Recovered/Resolved]
